FAERS Safety Report 9157226 (Version 1)
Quarter: 2013Q1

REPORT INFORMATION
  Report Type: Spontaneous
  Country: ES (occurrence: None)
  Receive Date: 20130212
  Receipt Date: 20130212
  Transmission Date: 20140127
  Serious: Yes (Hospitalization, Other)
  Sender: FDA-Public Use
  Company Number: AUR-APL-2013-01199

PATIENT
  Age: 49 Year
  Sex: Female

DRUGS (3)
  1. MIRTAZAPINE (MIRTAZAPINE) [Suspect]
     Indication: MAJOR DEPRESSION
  2. LAMOTRIGINE (LAMOTRIGINE) [Suspect]
  3. VENLAFAXINE HYDROCHLORIDE [Suspect]

REACTIONS (4)
  - Suicidal ideation [None]
  - No therapeutic response [None]
  - Dry mouth [None]
  - Constipation [None]
